FAERS Safety Report 9147848 (Version 1)
Quarter: 2013Q1

REPORT INFORMATION
  Report Type: Spontaneous
  Country: US (occurrence: US)
  Receive Date: 20130307
  Receipt Date: 20130307
  Transmission Date: 20140127
  Serious: Yes (Other)
  Sender: FDA-Public Use
  Company Number: CHPA2013US003898

PATIENT
  Age: 62 Year
  Sex: Female

DRUGS (1)
  1. BENEFIBER UNKNOWN [Suspect]
     Indication: SUPPLEMENTATION THERAPY
     Dosage: 2 TSP, QD
     Route: 048
     Dates: start: 2001

REACTIONS (1)
  - Breast cancer [Recovered/Resolved]
